FAERS Safety Report 25065326 (Version 3)
Quarter: 2025Q2

REPORT INFORMATION
  Report Type: Spontaneous
  Country: US (occurrence: US)
  Receive Date: 20250311
  Receipt Date: 20250430
  Transmission Date: 20250717
  Serious: No
  Sender: BRISTOL-MYERS SQUIBB COMPANY
  Company Number: US-BRISTOL-MYERS SQUIBB COMPANY-2025-036435

PATIENT
  Age: 78 Year
  Sex: Female

DRUGS (1)
  1. REVLIMID [Suspect]
     Active Substance: LENALIDOMIDE
     Indication: Breast cancer female
     Dosage: FREQUENCY-OTHER
     Route: 048

REACTIONS (7)
  - Dizziness [Unknown]
  - Heart rate irregular [Unknown]
  - Hypotension [Unknown]
  - Oral fungal infection [Unknown]
  - Dry eye [Unknown]
  - Dry mouth [Unknown]
  - Off label use [Unknown]
